FAERS Safety Report 12037622 (Version 2)
Quarter: 2016Q2

REPORT INFORMATION
  Report Type: Spontaneous
  Country: US (occurrence: US)
  Receive Date: 20160208
  Receipt Date: 20160513
  Transmission Date: 20160815
  Serious: Yes (Death, Other)
  Sender: FDA-Public Use
  Company Number: US-009507513-1602USA003526

PATIENT
  Sex: Male
  Weight: 95.24 kg

DRUGS (1)
  1. JANUVIA [Suspect]
     Active Substance: SITAGLIPTIN PHOSPHATE
     Dosage: 100 MG, QD
     Route: 048
     Dates: start: 20080119, end: 20091105

REACTIONS (25)
  - Asthma [Unknown]
  - Spinal osteoarthritis [Unknown]
  - Death [Fatal]
  - Diabetes mellitus [Unknown]
  - Ankle fracture [Unknown]
  - Oesophagitis [Unknown]
  - Vascular calcification [Unknown]
  - Gastrooesophageal reflux disease [Unknown]
  - Respiratory failure [Unknown]
  - Chronic obstructive pulmonary disease [Not Recovered/Not Resolved]
  - Pulmonary mass [Unknown]
  - Cholelithiasis [Unknown]
  - Pancreatic carcinoma metastatic [Unknown]
  - Pulmonary fibrosis [Unknown]
  - Atelectasis [Unknown]
  - Benign neoplasm of adrenal gland [Unknown]
  - Renal cyst [Unknown]
  - Iron deficiency anaemia [Unknown]
  - Cardiac disorder [Unknown]
  - Tonsillectomy [Unknown]
  - Chest wall mass [Unknown]
  - Metastases to liver [Unknown]
  - Appendicectomy [Unknown]
  - Arteriosclerosis coronary artery [Unknown]
  - Poor dental condition [Unknown]

NARRATIVE: CASE EVENT DATE: 201207
